FAERS Safety Report 7782048-2 (Version None)
Quarter: 2011Q3

REPORT INFORMATION
  Report Type: 
  Country: None (occurrence: None)
  Receive Date: 20110927
  Receipt Date: 20110118
  Transmission Date: 20111222
  Serious: No
  Sender: FDA-Public Use
  Company Number: US-BAYER-2011-007831

PATIENT
  Age: 59 Year
  Sex: Male

DRUGS (2)
  1. ULTRAVIST 150 [Suspect]
     Dosage: UNK
     Dates: start: 20101101, end: 20101101
  2. ULTRAVIST 150 [Suspect]
     Dosage: 100 ML, ONCE
     Route: 042
     Dates: start: 20110117, end: 20110117

REACTIONS (1)
  - ARTHRALGIA [None]
